FAERS Safety Report 4296609-9 (Version None)
Quarter: 2004Q1

REPORT INFORMATION
  Report Type: 
  Country: None (occurrence: None)
  Receive Date: 20040126
  Receipt Date: 20030902
  Transmission Date: 20041129
  Serious: No
  Sender: FDA-Public Use
  Company Number: USA030945976

PATIENT
  Age: 57 Year
  Sex: Male
  Weight: 73 kg

DRUGS (4)
  1. STRATTERA [Suspect]
     Indication: ABNORMAL BEHAVIOUR
     Dosage: 50MG/DAY
     Dates: start: 20030802
  2. APO-METOPROLOL [Concomitant]
  3. ZOCOR [Concomitant]
  4. CELEXA [Concomitant]

REACTIONS (2)
  - DYSURIA [None]
  - TESTICULAR PAIN [None]
